FAERS Safety Report 24151428 (Version 2)
Quarter: 2024Q3

REPORT INFORMATION
  Report Type: Spontaneous
  Country: JP (occurrence: JP)
  Receive Date: 20240730
  Receipt Date: 20240902
  Transmission Date: 20241017
  Serious: No
  Sender: ACCORD
  Company Number: JP-Accord-436146

PATIENT
  Age: 6 Decade
  Sex: Female
  Weight: 54.6 kg

DRUGS (13)
  1. MYCOPHENOLATE MOFETIL [Suspect]
     Active Substance: MYCOPHENOLATE MOFETIL
     Indication: Product used for unknown indication
  2. TACROLIMUS [Interacting]
     Active Substance: TACROLIMUS
     Indication: Immunosuppressant drug therapy
  3. RITONAVIR [Interacting]
     Active Substance: RITONAVIR
     Indication: COVID-19
  4. NIRMATRELVIR [Interacting]
     Active Substance: NIRMATRELVIR
     Indication: COVID-19
  5. PREDNISOLONE [Suspect]
     Active Substance: PREDNISOLONE
     Indication: Product used for unknown indication
  6. RABEPRAZOLE SODIUM [Concomitant]
     Active Substance: RABEPRAZOLE SODIUM
  7. ATORVASTATIN [Concomitant]
     Active Substance: ATORVASTATIN
  8. ALFACALCIDOL [Concomitant]
     Active Substance: ALFACALCIDOL
  9. TELMISARTAN [Concomitant]
     Active Substance: TELMISARTAN
  10. AMLODIPINE [Concomitant]
     Active Substance: AMLODIPINE BESYLATE
  11. FERROUS SULFATE [Concomitant]
     Active Substance: FERROUS SULFATE
  12. ESTRADIOL [Concomitant]
     Active Substance: ESTRADIOL
  13. PROGESTERONE [Concomitant]
     Active Substance: PROGESTERONE

REACTIONS (9)
  - Drug interaction [Unknown]
  - Glomerular filtration rate decreased [Unknown]
  - Immunosuppressant drug level increased [Recovered/Resolved]
  - Diarrhoea [Unknown]
  - Headache [Unknown]
  - Vomiting [Unknown]
  - Oropharyngeal pain [Unknown]
  - COVID-19 [Recovered/Resolved]
  - Blood creatinine increased [Unknown]
